FAERS Safety Report 10232401 (Version 1)
Quarter: 2014Q2

REPORT INFORMATION
  Report Type: Spontaneous
  Country: US (occurrence: None)
  Receive Date: 20140610
  Receipt Date: 20140610
  Transmission Date: 20141212
  Serious: Yes (Death, Other)
  Sender: FDA-Public Use
  Company Number: SYM-2014-21710

PATIENT
  Age: 79 Year
  Sex: Female

DRUGS (17)
  1. XENAZINE [Suspect]
     Indication: DYSTONIA
     Route: 048
     Dates: start: 20140115
  2. LEVOTHYROXINE (LEVOTHYROXINE) [Concomitant]
  3. OMEPRAZOLE (OMEPRAZOLE) [Concomitant]
  4. DOCUSATE (DOCUSATE) [Concomitant]
  5. METOPROLOL (METOPROLOL) [Concomitant]
  6. SPIRIVA [Concomitant]
  7. CYMBALTA [Concomitant]
  8. BACLOFEN (BACLOFEN) [Concomitant]
  9. TIZANIDINE (TIZANIDINE) [Concomitant]
  10. ZOLPIDEM (ZOLPIDEM) [Concomitant]
  11. DIAZEPAM (DIAZEPAM) [Concomitant]
  12. PARACETAMOL (PARACETAMOL) [Concomitant]
  13. SENNA (SENNA ALEXANDRINA) (SENNA ALEXANDRINA) [Concomitant]
  14. LIDOCAINE (LIDOCAINE) [Concomitant]
  15. BISACODYL (BISACODYL) [Concomitant]
  16. MILK OF MAGNESIA (MAGNESIUM HYDROXIDE) (MAGNESIUM HYDROXIDE) [Concomitant]
  17. ROBINUL (GLYCOPYRRONIUM BROMIDE) (GLYCOPYRRONIUM BROMIDE) [Concomitant]

REACTIONS (1)
  - Death [None]
